FAERS Safety Report 24740635 (Version 2)
Quarter: 2024Q4

REPORT INFORMATION
  Report Type: Spontaneous
  Country: US (occurrence: US)
  Receive Date: 20241217
  Receipt Date: 20241223
  Transmission Date: 20250114
  Serious: No
  Sender: AMGEN
  Company Number: US-AMGEN-USASP2024241613

PATIENT
  Age: 58 Year
  Sex: Female

DRUGS (23)
  1. AIMOVIG [Suspect]
     Active Substance: ERENUMAB\ERENUMAB-AOOE
     Indication: Migraine
     Dosage: 140 MILLIGRAM
     Route: 058
  2. AIMOVIG [Suspect]
     Active Substance: ERENUMAB\ERENUMAB-AOOE
     Indication: Migraine
  3. ZINC [Concomitant]
     Active Substance: ZINC
  4. HERBALS [Concomitant]
     Active Substance: HERBALS
  5. VITAMIN C [Concomitant]
     Active Substance: ASCORBIC ACID
  6. SERTRALINE [Concomitant]
     Active Substance: SERTRALINE HYDROCHLORIDE
     Indication: Anxiety
  7. LINZESS [Concomitant]
     Active Substance: LINACLOTIDE
  8. FAMOTIDINE [Concomitant]
     Active Substance: FAMOTIDINE
     Indication: Gastrooesophageal reflux disease
  9. DEXLANSOPRAZOLE [Concomitant]
     Active Substance: DEXLANSOPRAZOLE
     Indication: Gastrooesophageal reflux disease
  10. BUPROPION [Concomitant]
     Active Substance: BUPROPION
     Dosage: 300 MILLIGRAM
  11. TIZANIDINE [Concomitant]
     Active Substance: TIZANIDINE
     Indication: Hypotonia
  12. ROPINIROLE [Concomitant]
     Active Substance: ROPINIROLE
     Indication: Restless legs syndrome
  13. GENESA [Concomitant]
     Active Substance: ARBUTAMINE HYDROCHLORIDE
     Indication: Bladder disorder
     Dosage: 55 MILLIGRAM
  14. CARVEDILOL [Concomitant]
     Active Substance: CARVEDILOL
  15. BUSPIRONE [Concomitant]
     Active Substance: BUSPIRONE HYDROCHLORIDE
  16. PHENERGAN [Concomitant]
     Active Substance: PROMETHAZINE HYDROCHLORIDE
  17. ONDANSETRON [Concomitant]
     Active Substance: ONDANSETRON
     Indication: Nausea
  18. TERBINAFINE [Concomitant]
     Active Substance: TERBINAFINE\TERBINAFINE HYDROCHLORIDE
     Indication: Onychomycosis
  19. MEMANTINE [Concomitant]
     Active Substance: MEMANTINE
     Dosage: 14 MILLIGRAM
  20. ASPIRIN [Concomitant]
     Active Substance: ASPIRIN
  21. UBRELVY [Concomitant]
     Active Substance: UBROGEPANT
     Indication: Migraine
  22. HYDROCODONE [Concomitant]
     Active Substance: HYDROCODONE
     Indication: Cough
  23. NITROFURANTOIN [Concomitant]
     Active Substance: NITROFURANTOIN
     Indication: Urinary tract infection

REACTIONS (8)
  - Arthralgia [Unknown]
  - Eye disorder [Unknown]
  - Migraine [Unknown]
  - Weight decreased [Unknown]
  - Drug dose omission by device [Unknown]
  - Device difficult to use [Unknown]
  - Illness [Unknown]
  - Confusional state [Unknown]

NARRATIVE: CASE EVENT DATE: 20241205
